FAERS Safety Report 4381190-6 (Version None)
Quarter: 2004Q2

REPORT INFORMATION
  Report Type: 
  Country: None (occurrence: None)
  Receive Date: 20040617
  Receipt Date: 20040617
  Transmission Date: 20050107
  Serious: Yes (Hospitalization)
  Sender: FDA-Public Use
  Company Number: None

PATIENT
  Age: 52 Year
  Sex: Female
  Weight: 242.8 kg

DRUGS (24)
  1. GEMCITABINE [Suspect]
     Indication: METASTATIC CARCINOMA OF THE BLADDER
     Dosage: 1000 MG/M2
     Dates: start: 20040324
  2. GEMCITABINE [Suspect]
     Indication: METASTATIC CARCINOMA OF THE BLADDER
     Dosage: 1000 MG/M2
     Dates: start: 20040331
  3. GEMCITABINE [Suspect]
     Indication: METASTATIC CARCINOMA OF THE BLADDER
     Dosage: 1000 MG/M2
     Dates: start: 20040414
  4. GEMCITABINE [Suspect]
     Indication: METASTATIC CARCINOMA OF THE BLADDER
     Dosage: 1000 MG/M2
     Dates: start: 20040421
  5. GEMCITABINE [Suspect]
     Indication: METASTATIC CARCINOMA OF THE BLADDER
     Dosage: 1000 MG/M2
     Dates: start: 20040512
  6. GEMCITABINE [Suspect]
     Indication: METASTATIC CARCINOMA OF THE BLADDER
     Dosage: 1000 MG/M2
     Dates: start: 20040601
  7. CARBOPLATIN [Suspect]
     Indication: METASTATIC CARCINOMA OF THE BLADDER
     Dosage: AUC 5
     Dates: start: 20040324
  8. CARBOPLATIN [Suspect]
     Indication: METASTATIC CARCINOMA OF THE BLADDER
     Dosage: AUC 5
     Dates: start: 20040414
  9. CARBOPLATIN [Suspect]
     Indication: METASTATIC CARCINOMA OF THE BLADDER
     Dosage: AUC 5
     Dates: start: 20040512
  10. CARBOPLATIN [Suspect]
     Indication: METASTATIC CARCINOMA OF THE BLADDER
     Dosage: AUC 5
     Dates: start: 20040602
  11. SYNTHROID [Concomitant]
  12. NORVASC [Concomitant]
  13. LISINOPRIL [Concomitant]
  14. TRICOR [Concomitant]
  15. ZANTAC 150 [Concomitant]
  16. M.V.I. [Concomitant]
  17. FERROUS SULFATE TAB [Concomitant]
  18. DECADRON [Concomitant]
  19. ATIVAN [Concomitant]
  20. OXYCONTIN [Concomitant]
  21. COUMADIN [Concomitant]
  22. OXYCODONE [Concomitant]
  23. DITROPAN [Concomitant]
  24. MARCROBID [Concomitant]

REACTIONS (10)
  - BURNING SENSATION [None]
  - CATHETER RELATED COMPLICATION [None]
  - CHILLS [None]
  - COAGULOPATHY [None]
  - DEHYDRATION [None]
  - HAEMATURIA [None]
  - NAUSEA [None]
  - RECTAL HAEMORRHAGE [None]
  - THROMBOCYTOPENIA [None]
  - VOMITING [None]
